FAERS Safety Report 26155032 (Version 1)
Quarter: 2025Q4

REPORT INFORMATION
  Report Type: Spontaneous
  Country: JP (occurrence: JP)
  Receive Date: 20251215
  Receipt Date: 20251215
  Transmission Date: 20260118
  Serious: Yes (Other)
  Sender: AMGEN
  Company Number: JP-AMGEN-JPNSP2025243913

PATIENT
  Age: 5 Year
  Sex: Male

DRUGS (3)
  1. BLINATUMOMAB [Suspect]
     Active Substance: BLINATUMOMAB
     Indication: B precursor type acute leukaemia
     Dosage: UNK
     Route: 065
  2. BORTEZOMIB [Concomitant]
     Active Substance: BORTEZOMIB
     Indication: B precursor type acute leukaemia
     Dosage: UNK
     Dates: start: 2019
  3. PREDNISOLONE [Concomitant]
     Active Substance: PREDNISOLONE
     Indication: Acute graft versus host disease

REACTIONS (4)
  - Venoocclusive liver disease [Unknown]
  - Graft versus host disease in skin [Unknown]
  - Graft versus host disease in gastrointestinal tract [Unknown]
  - Subdural haematoma [Unknown]
